FAERS Safety Report 10664009 (Version 2)
Quarter: 2015Q2

REPORT INFORMATION
  Report Type: Spontaneous
  Country: US (occurrence: None)
  Receive Date: 20141217
  Receipt Date: 20150414
  Transmission Date: 20150821
  Serious: Yes (Hospitalization)
  Sender: FDA-Public Use
  Company Number: 1713747-2014-999220

PATIENT
  Age: 84 Year
  Sex: Female

DRUGS (20)
  1. LIBERTY CYCLER [Concomitant]
     Active Substance: DEVICE
  2. ASPIRIN. [Concomitant]
     Active Substance: ASPIRIN
  3. PROCRIT [Concomitant]
     Active Substance: ERYTHROPOIETIN
  4. GLUCOTROL [Concomitant]
     Active Substance: GLIPIZIDE
  5. ROCALTROL [Concomitant]
     Active Substance: CALCITRIOL
  6. FLAGYL [Concomitant]
     Active Substance: METRONIDAZOLE\METRONIDAZOLE HYDROCHLORIDE
  7. SYNTHROID [Concomitant]
     Active Substance: LEVOTHYROXINE SODIUM
  8. PROTONIX [Concomitant]
     Active Substance: PANTOPRAZOLE SODIUM
  9. LIBERTY CYCLER SET [Concomitant]
  10. CALCIUM CARBONATE. [Concomitant]
     Active Substance: CALCIUM CARBONATE
  11. KLOR-CON [Concomitant]
     Active Substance: POTASSIUM CHLORIDE
  12. ZOVIRAX [Concomitant]
     Active Substance: ACYCLOVIR
  13. DECADRON [Concomitant]
     Active Substance: DEXAMETHASONE
  14. ZOFRAN [Concomitant]
     Active Substance: ONDANSETRON HYDROCHLORIDE
  15. DELFLEX [Suspect]
     Active Substance: CALCIUM CHLORIDE\DEXTROSE MONOHYDRATE\MAGNESIUM CHLORIDE\SODIUM CHLORIDE\SODIUM LACTATE
     Indication: PERITONEAL DIALYSIS
     Route: 033
     Dates: start: 20120113, end: 201411
  16. DELFLEX [Suspect]
     Active Substance: CALCIUM CHLORIDE\DEXTROSE MONOHYDRATE\MAGNESIUM CHLORIDE\SODIUM CHLORIDE\SODIUM LACTATE
     Route: 033
     Dates: start: 20120113, end: 201411
  17. NORVASC [Concomitant]
     Active Substance: AMLODIPINE BESYLATE
  18. PHOSLO [Concomitant]
     Active Substance: CALCIUM ACETATE
  19. COREG [Concomitant]
     Active Substance: CARVEDILOL
  20. REVLIMID [Concomitant]
     Active Substance: LENALIDOMIDE

REACTIONS (6)
  - Hyperglycaemia [None]
  - Nausea [None]
  - Vomiting [None]
  - Unresponsive to stimuli [None]
  - Asthenia [None]
  - Diabetes mellitus inadequate control [None]

NARRATIVE: CASE EVENT DATE: 20141111
